FAERS Safety Report 13581673 (Version 1)
Quarter: 2017Q2

REPORT INFORMATION
  Report Type: Spontaneous
  Country: US (occurrence: US)
  Receive Date: 20170525
  Receipt Date: 20170525
  Transmission Date: 20170830
  Serious: No
  Sender: FDA-Public Use
  Company Number: US-MYLANLABS-2016M1016485

PATIENT
  Sex: Female

DRUGS (2)
  1. BUPROPION HYDROCHLORIDE SR [Suspect]
     Active Substance: BUPROPION HYDROCHLORIDE
     Indication: OBSESSIVE-COMPULSIVE DISORDER
     Dosage: 100 MG, BID
     Route: 048
     Dates: start: 201602, end: 2016
  2. BUPROPION HYDROCHLORIDE SR [Suspect]
     Active Substance: BUPROPION HYDROCHLORIDE
     Indication: OFF LABEL USE

REACTIONS (5)
  - Anxiety [Recovering/Resolving]
  - Loss of personal independence in daily activities [None]
  - Drug ineffective for unapproved indication [Recovering/Resolving]
  - Stress [Recovering/Resolving]
  - Fatigue [Recovering/Resolving]
